FAERS Safety Report 6173280-2 (Version None)
Quarter: 2009Q2

REPORT INFORMATION
  Report Type: 
  Country: None (occurrence: None)
  Receive Date: 20090428
  Receipt Date: 20090415
  Transmission Date: 20091009
  Serious: Yes (Hospitalization)
  Sender: FDA-Public Use
  Company Number: 1000005950

PATIENT
  Age: 78 Year
  Sex: Female

DRUGS (6)
  1. MEMANTINE HCL [Suspect]
     Indication: DEMENTIA ALZHEIMER'S TYPE
     Dosage: 20 MG (10 MG, 2 IN 1 D), ORAL
     Route: 048
     Dates: end: 20081118
  2. EQUANIL [Suspect]
     Dosage: 400 MG (400 MG, 1 IN 1 D), ORAL
     Route: 048
  3. NOCTRAN (TABLETS) [Suspect]
     Dosage: 5 MG (5 MG, 1 IN 1 D), ORAL
     Route: 048
  4. REMINYL (TABLETS0 [Suspect]
     Indication: DEMENTIA ALZHEIMER'S TYPE
     Dosage: (8 MG), ORAL
     Route: 048
     Dates: end: 20081118
  5. CETORNAN [Concomitant]
  6. POTASSIUM GLUCONATE TAB [Concomitant]

REACTIONS (2)
  - GRAND MAL CONVULSION [None]
  - SPEECH DISORDER [None]
